FAERS Safety Report 12602453 (Version 1)
Quarter: 2016Q3

REPORT INFORMATION
  Report Type: Spontaneous
  Country: US (occurrence: US)
  Receive Date: 20160728
  Receipt Date: 20160728
  Transmission Date: 20161109
  Serious: No
  Sender: FDA-Public Use
  Company Number: US-BAUSCH-BL-2015-018060

PATIENT
  Age: 34 Year
  Sex: Male

DRUGS (2)
  1. OPCON-A [Suspect]
     Active Substance: NAPHAZOLINE HYDROCHLORIDE\PHENIRAMINE MALEATE
     Indication: OCULAR HYPERAEMIA
     Route: 047
     Dates: start: 20150508, end: 20150508
  2. OPCON-A [Suspect]
     Active Substance: NAPHAZOLINE HYDROCHLORIDE\PHENIRAMINE MALEATE
     Indication: OCULAR DISCOMFORT

REACTIONS (5)
  - Mydriasis [Recovered/Resolved]
  - Foreign body in eye [Recovered/Resolved]
  - Corneal abrasion [Recovered/Resolved]
  - Blepharitis [Recovered/Resolved]
  - Vision blurred [Recovered/Resolved]

NARRATIVE: CASE EVENT DATE: 20150508
